FAERS Safety Report 5954539-8 (Version None)
Quarter: 2008Q4

REPORT INFORMATION
  Report Type: 
  Country: None (occurrence: None)
  Receive Date: 20081117
  Receipt Date: 20081106
  Transmission Date: 20090506
  Serious: Yes (Other)
  Sender: FDA-Public Use
  Company Number: US-ROCHE-595758

PATIENT
  Sex: Male
  Weight: 96.2 kg

DRUGS (3)
  1. CAPECITABINE [Suspect]
     Indication: HEAD AND NECK CANCER
     Dosage: TWO WEEKS ON, ONE WEEK OFF
     Route: 048
     Dates: end: 20081023
  2. OXALIPLATIN [Concomitant]
  3. EPIRUBICIN [Concomitant]

REACTIONS (1)
  - DISEASE PROGRESSION [None]
